FAERS Safety Report 23837061 (Version 2)
Quarter: 2024Q3

REPORT INFORMATION
  Report Type: Spontaneous
  Country: US (occurrence: US)
  Receive Date: 20240509
  Receipt Date: 20240909
  Transmission Date: 20241016
  Serious: No
  Sender: TEVA
  Company Number: US-TEVA-VS-3196017

PATIENT
  Age: 21 Year
  Sex: Male

DRUGS (2)
  1. UZEDY [Suspect]
     Active Substance: RISPERIDONE
     Indication: Patient elopement
     Dosage: 100/0.28 MG/ML
     Route: 065
     Dates: start: 20240308
  2. UZEDY [Suspect]
     Active Substance: RISPERIDONE
     Indication: Incoherent

REACTIONS (2)
  - Off label use [Unknown]
  - Insurance issue [Unknown]

NARRATIVE: CASE EVENT DATE: 20240308
